FAERS Safety Report 4287126-0 (Version None)
Quarter: 2004Q1

REPORT INFORMATION
  Report Type: 
  Country: None (occurrence: None)
  Receive Date: 20040204
  Receipt Date: 20040112
  Transmission Date: 20041129
  Serious: Yes (Hospitalization)
  Sender: FDA-Public Use
  Company Number: S03-FRA-04959-01

PATIENT
  Age: 41 Year
  Sex: Female

DRUGS (1)
  1. SEROPRAM                 (CITALOPRAM HYDROBROMIDE) [Suspect]
     Indication: DEPRESSION
     Dosage: 20 MG QD PO
     Route: 048
     Dates: start: 20031021, end: 20031113

REACTIONS (2)
  - EOSINOPHILIA [None]
  - LEUKOCYTOSIS [None]
